FAERS Safety Report 17017084 (Version 2)
Quarter: 2020Q2

REPORT INFORMATION
  Report Type: Spontaneous
  Country: CA (occurrence: CA)
  Receive Date: 20191111
  Receipt Date: 20200424
  Transmission Date: 20200713
  Serious: Yes (Other)
  Sender: FDA-Public Use
  Company Number: CA-SA-2019SA305773

PATIENT
  Sex: Female

DRUGS (1)
  1. HYDROCHLOROTHIAZIDE/IRBESARTAN [Suspect]
     Active Substance: HYDROCHLOROTHIAZIDE\IRBESARTAN
     Indication: BLOOD PRESSURE MANAGEMENT
     Dosage: UNK
     Route: 065

REACTIONS (4)
  - Blood pressure increased [Unknown]
  - Feeling abnormal [Unknown]
  - Anuria [Unknown]
  - Drug ineffective [Unknown]
